FAERS Safety Report 6264441-2 (Version None)
Quarter: 2009Q3

REPORT INFORMATION
  Report Type: 
  Country: None (occurrence: None)
  Receive Date: 20090710
  Receipt Date: 20090616
  Transmission Date: 20100115
  Serious: Yes (Death, Other)
  Sender: FDA-Public Use
  Company Number: JP-MERCK-0906USA03784

PATIENT
  Age: 58 Year
  Sex: Male
  Weight: 50 kg

DRUGS (6)
  1. PEPCID [Suspect]
     Indication: GASTRIC ULCER
     Route: 048
  2. PEPCID [Suspect]
     Indication: PROPHYLAXIS AGAINST DEHYDRATION
     Route: 042
  3. ELECTROLYTES (UNSPECIFIED) AND SODIUM LACTATE [Concomitant]
     Route: 065
  4. FUROSEMIDE [Concomitant]
     Route: 065
  5. SODIUM CHLORIDE [Concomitant]
     Route: 065
  6. OMEPRAL [Suspect]
     Route: 042

REACTIONS (5)
  - ENTEROCOLITIS BACTERIAL [None]
  - HYPONATRAEMIA [None]
  - IMPAIRED GASTRIC EMPTYING [None]
  - INAPPROPRIATE ANTIDIURETIC HORMONE SECRETION [None]
  - PANCREATIC CARCINOMA [None]
